FAERS Safety Report 5239874-3 (Version None)
Quarter: 2007Q1

REPORT INFORMATION
  Report Type: 
  Country: None (occurrence: None)
  Receive Date: 20070216
  Receipt Date: 20070206
  Transmission Date: 20070707
  Serious: Yes (Hospitalization)
  Sender: FDA-Public Use
  Company Number: FR-ABBOTT-07P-056-0358392-00

PATIENT
  Sex: Female
  Weight: 67 kg

DRUGS (3)
  1. HUMIRA [Suspect]
     Indication: POLYARTERITIS NODOSA
     Route: 058
     Dates: start: 20061001, end: 20061207
  2. IRON [Concomitant]
     Indication: ANAEMIA
     Dates: start: 20060601
  3. PREDNISONE TAB [Concomitant]
     Indication: DRUG USE FOR UNKNOWN INDICATION

REACTIONS (6)
  - ANOREXIA [None]
  - ANTINEUTROPHIL CYTOPLASMIC ANTIBODY INCREASED [None]
  - ASTHENIA [None]
  - DRUG INEFFECTIVE [None]
  - SUBCUTANEOUS NODULE [None]
  - VASCULITIS [None]
